FAERS Safety Report 6904969-2 (Version None)
Quarter: 2010Q3

REPORT INFORMATION
  Report Type: 
  Country: None (occurrence: None)
  Receive Date: 20100804
  Receipt Date: 20090811
  Transmission Date: 20110219
  Serious: No
  Sender: FDA-Public Use
  Company Number: US-PFIZER INC-2009229506

PATIENT
  Sex: Female
  Weight: 83.447 kg

DRUGS (5)
  1. LYRICA [Suspect]
     Indication: NEUROPATHY PERIPHERAL
     Dosage: 50 MG, 4X/DAY
     Dates: start: 20090101
  2. TRIAMTERENE AND HYDROCHLOROTHIAZIDE [Concomitant]
     Indication: HYPERTENSION
     Dosage: UNK
  3. COZAAR [Concomitant]
     Indication: HYPERTENSION
     Dosage: UNK
  4. LEXAPRO [Concomitant]
     Dosage: 20 MG, 1X/DAY
  5. ALLOPURINOL [Concomitant]
     Indication: GOUT
     Dosage: UNK

REACTIONS (2)
  - INTRAOCULAR PRESSURE INCREASED [None]
  - OEDEMA PERIPHERAL [None]
